FAERS Safety Report 9962457 (Version 1)
Quarter: 2014Q1

REPORT INFORMATION
  Report Type: Report from Study
  Country: US (occurrence: US)
  Receive Date: 20140305
  Receipt Date: 20140305
  Transmission Date: 20141002
  Serious: No
  Sender: FDA-Public Use
  Company Number: US-ABBVIE-13P-163-1110828-00

PATIENT
  Age: 47 Year
  Sex: Male

DRUGS (7)
  1. HUMIRA [Suspect]
     Indication: PSORIASIS
     Dates: start: 20130521
  2. ZIAC [Concomitant]
     Indication: HYPERTENSION
     Dosage: DAILY
  3. BENAZEPRIL [Concomitant]
     Indication: HYPERTENSION
     Dosage: DAILY
  4. AMLODIPINE [Concomitant]
     Indication: HYPERTENSION
     Dosage: DAILY
  5. PRAVACHOL [Concomitant]
     Indication: BLOOD CHOLESTEROL INCREASED
     Dosage: DAILY
  6. ALLOPURINOL [Concomitant]
     Indication: GOUT
     Dosage: DAILY
  7. NEXIUM [Concomitant]
     Indication: GASTROOESOPHAGEAL REFLUX DISEASE
     Dosage: DAILY

REACTIONS (1)
  - Dry skin [Not Recovered/Not Resolved]
